FAERS Safety Report 9548023 (Version 2)
Quarter: 2013Q3

REPORT INFORMATION
  Report Type: Spontaneous
  Country: GB (occurrence: GB)
  Receive Date: 20130924
  Receipt Date: 20130930
  Transmission Date: 20140515
  Serious: Yes (Other)
  Sender: FDA-Public Use
  Company Number: GB-ROCHE-1275850

PATIENT
  Age: 65 Year
  Sex: Female

DRUGS (4)
  1. RIBAVIRIN [Suspect]
     Indication: HEPATITIS C
     Route: 048
  2. TELAPREVIR [Suspect]
     Indication: HEPATITIS C
     Route: 048
     Dates: start: 20130213, end: 20130306
  3. PEGINTERFERON ALFA-2B [Suspect]
     Indication: HEPATITIS C
     Route: 058
     Dates: start: 20130213
  4. BENDROFLUAZIDE [Concomitant]
     Indication: HYPERTENSION
     Route: 065

REACTIONS (19)
  - Lethargy [Recovered/Resolved]
  - Blood creatine increased [Recovered/Resolved]
  - Heart rate decreased [Unknown]
  - Blood pressure decreased [Unknown]
  - Feeling abnormal [Unknown]
  - Dizziness [Unknown]
  - Swelling face [Recovered/Resolved]
  - Malaise [Unknown]
  - Dry mouth [Unknown]
  - Feeling hot [Unknown]
  - Asthenia [Unknown]
  - Abdominal discomfort [Unknown]
  - Rash [Recovered/Resolved]
  - Local swelling [Recovered/Resolved]
  - Renal disorder [Recovered/Resolved]
  - Abdominal distension [Unknown]
  - Back pain [Recovered/Resolved]
  - Pollakiuria [Unknown]
  - Fatigue [Unknown]
